FAERS Safety Report 24680775 (Version 1)
Quarter: 2024Q4

REPORT INFORMATION
  Report Type: Spontaneous
  Country: DE (occurrence: DE)
  Receive Date: 20241129
  Receipt Date: 20241129
  Transmission Date: 20250115
  Serious: Yes (Other)
  Sender: NOVARTIS
  Company Number: DE-PEI-202400026342

PATIENT
  Age: 9 Year
  Sex: Female
  Weight: 31 kg

DRUGS (1)
  1. COSENTYX [Suspect]
     Active Substance: SECUKINUMAB
     Indication: Psoriatic arthropathy
     Dosage: 1 DOSAGE FORM (1 DOSE)
     Route: 065
     Dates: start: 202307, end: 202406

REACTIONS (1)
  - Haemophagocytic lymphohistiocytosis [Not Recovered/Not Resolved]

NARRATIVE: CASE EVENT DATE: 20240501
